FAERS Safety Report 14639641 (Version 1)
Quarter: 2018Q1

REPORT INFORMATION
  Report Type: Spontaneous
  Country: US (occurrence: US)
  Receive Date: 20180315
  Receipt Date: 20180315
  Transmission Date: 20180509
  Serious: No
  Sender: FDA-Public Use
  Company Number: US-009507513-1802USA007410

PATIENT
  Sex: Female
  Weight: 58 kg

DRUGS (2)
  1. ETONOGESTREL IMPLANT- UNKNOWN [Suspect]
     Active Substance: ETONOGESTREL
     Dosage: 1 DF, UNK, LEFT ARM
     Route: 059
     Dates: start: 20130217, end: 2016
  2. ETONOGESTREL IMPLANT- UNKNOWN [Suspect]
     Active Substance: ETONOGESTREL
     Dosage: 1 DF, UNK, LEFT ARM
     Route: 059
     Dates: start: 2016, end: 20171221

REACTIONS (2)
  - Mood altered [Unknown]
  - Complication of device removal [Recovered/Resolved]
